FAERS Safety Report 8577549-3 (Version None)
Quarter: 2012Q3

REPORT INFORMATION
  Report Type: 
  Country: None (occurrence: None)
  Receive Date: 20120807
  Receipt Date: 20120724
  Transmission Date: 20120928
  Serious: Yes (Other)
  Sender: FDA-Public Use
  Company Number: CA-ROCHE-1096351

PATIENT
  Sex: Male

DRUGS (6)
  1. VENTOLIN [Concomitant]
  2. XOLAIR [Suspect]
     Indication: ASTHMA
     Route: 058
     Dates: start: 20120312
  3. PULMICORT [Concomitant]
  4. FLONASE [Concomitant]
  5. XOLAIR [Suspect]
     Dates: start: 20120711
  6. SYMBICORT [Concomitant]

REACTIONS (6)
  - LOWER RESPIRATORY TRACT INFECTION [None]
  - PNEUMONIA [None]
  - HEADACHE [None]
  - WHEEZING [None]
  - COUGH [None]
  - ARTHRALGIA [None]
